FAERS Safety Report 8530389-3 (Version None)
Quarter: 2012Q3

REPORT INFORMATION
  Report Type: 
  Country: None (occurrence: None)
  Receive Date: 20120723
  Receipt Date: 20120718
  Transmission Date: 20120928
  Serious: Yes (Hospitalization)
  Sender: FDA-Public Use
  Company Number: IT-PFIZER INC-2012149412

PATIENT
  Age: 58 Year
  Sex: Male

DRUGS (3)
  1. XANAX [Suspect]
     Indication: DEPRESSION
     Dosage: 0.5 MG, 1X/DAY
     Route: 048
     Dates: start: 20120326
  2. LORMETAZEPAM [Concomitant]
     Dosage: 20 GTT, UNK
     Route: 048
  3. VENLAFAXINE HYDROCHLORIDE [Concomitant]
     Indication: DEPRESSION
     Dosage: 75 MG
     Route: 048
     Dates: start: 20080527, end: 20120526

REACTIONS (2)
  - COLITIS [None]
  - ABDOMINAL PAIN [None]
